FAERS Safety Report 12832297 (Version 1)
Quarter: 2016Q4

REPORT INFORMATION
  Report Type: Spontaneous
  Country: US (occurrence: US)
  Receive Date: 20161010
  Receipt Date: 20161010
  Transmission Date: 20170207
  Serious: No
  Sender: FDA-Public Use
  Company Number: US-JAZZ-2016-US-013067

PATIENT
  Sex: Female

DRUGS (25)
  1. XYREM [Suspect]
     Active Substance: SODIUM OXYBATE
     Indication: NARCOLEPSY
     Dosage: 2.5 G, BID
     Route: 048
     Dates: start: 201307, end: 201309
  2. FERROUS SULFATE. [Concomitant]
     Active Substance: FERROUS SULFATE
  3. XYREM [Suspect]
     Active Substance: SODIUM OXYBATE
     Dosage: DOSE ADJUSTMENTS
     Route: 048
     Dates: start: 201309, end: 201410
  4. LACTULOSE. [Concomitant]
     Active Substance: LACTULOSE
  5. OXYCODONE HYDROCHLORIDE. [Concomitant]
     Active Substance: OXYCODONE HYDROCHLORIDE
  6. CELEXA [Concomitant]
     Active Substance: CITALOPRAM HYDROBROMIDE
  7. XYREM [Suspect]
     Active Substance: SODIUM OXYBATE
     Dosage: 3 G, BID
     Route: 048
     Dates: start: 201410
  8. LYRICA [Concomitant]
     Active Substance: PREGABALIN
  9. HYDROCHLOROTHIAZIDE. [Concomitant]
     Active Substance: HYDROCHLOROTHIAZIDE
  10. METOPROLOL TARTRATE. [Concomitant]
     Active Substance: METOPROLOL TARTRATE
  11. XIFAXAN [Concomitant]
     Active Substance: RIFAXIMIN
  12. WELLBUTRIN XL [Concomitant]
     Active Substance: BUPROPION HYDROCHLORIDE
  13. IBUPROFEN. [Concomitant]
     Active Substance: IBUPROFEN
  14. VESICARE [Concomitant]
     Active Substance: SOLIFENACIN SUCCINATE
  15. OMEPRAZOLE DR [Concomitant]
     Active Substance: OMEPRAZOLE
  16. LUTEIN [Concomitant]
     Active Substance: LUTEIN
  17. XANAX [Concomitant]
     Active Substance: ALPRAZOLAM
  18. LORATADINE. [Concomitant]
     Active Substance: LORATADINE
  19. SYMBICORT [Concomitant]
     Active Substance: BUDESONIDE\FORMOTEROL FUMARATE DIHYDRATE
  20. MULTIVITAMIN [Concomitant]
     Active Substance: VITAMINS
  21. LEXAPRO [Concomitant]
     Active Substance: ESCITALOPRAM OXALATE
  22. GABAPENTIN. [Concomitant]
     Active Substance: GABAPENTIN
  23. PROAIR HFA [Concomitant]
     Active Substance: ALBUTEROL SULFATE
  24. HYDROCODONE/ACETAMINOPHEN [Concomitant]
     Active Substance: ACETAMINOPHEN\HYDROCODONE
  25. ADDERALL [Concomitant]
     Active Substance: AMPHETAMINE ASPARTATE\AMPHETAMINE SULFATE\DEXTROAMPHETAMINE SACCHARATE\DEXTROAMPHETAMINE SULFATE

REACTIONS (1)
  - Chronic obstructive pulmonary disease [Recovered/Resolved]
